FAERS Safety Report 15745782 (Version 1)
Quarter: 2018Q4

REPORT INFORMATION
  Report Type: Report from Study
  Country: MX (occurrence: MX)
  Receive Date: 20181220
  Receipt Date: 20181220
  Transmission Date: 20190205
  Serious: Yes (Other)
  Sender: FDA-Public Use
  Company Number: PHHY2018MX190661

PATIENT
  Sex: Female
  Weight: 58 kg

DRUGS (2)
  1. PATANOL [Suspect]
     Active Substance: OLOPATADINE HYDROCHLORIDE
     Indication: EYE PRURITUS
     Dosage: 1 GTT (IN EACH EYE IN THE MORNING), QD
     Route: 047
     Dates: start: 201406
  2. PATANOL [Suspect]
     Active Substance: OLOPATADINE HYDROCHLORIDE
     Indication: OCULAR HYPERAEMIA

REACTIONS (9)
  - Condition aggravated [Unknown]
  - Eye pruritus [Unknown]
  - Abortion [Unknown]
  - Ocular hyperaemia [Unknown]
  - Eye irritation [Unknown]
  - Brain oedema [Unknown]
  - Eye disorder [Unknown]
  - Weight increased [Unknown]
  - Maternal exposure during pregnancy [Unknown]
